FAERS Safety Report 19235586 (Version 2)
Quarter: 2021Q2

REPORT INFORMATION
  Report Type: Spontaneous
  Country: AU (occurrence: AU)
  Receive Date: 20210510
  Receipt Date: 20210514
  Transmission Date: 20210717
  Serious: Yes (Hospitalization, Other)
  Sender: FDA-Public Use
  Company Number: AU-ASTELLAS-2021US016756

PATIENT
  Sex: Female
  Weight: 1 kg

DRUGS (7)
  1. PROGRAF [Suspect]
     Active Substance: TACROLIMUS
     Dosage: 12 MG, DAILY
     Route: 064
     Dates: start: 20190208, end: 20190902
  2. PREDNISOLONE. [Concomitant]
     Active Substance: PREDNISOLONE
     Indication: RENAL TRANSPLANT
     Dosage: 2.5?7.5 MG DAILY
     Route: 064
  3. PROGRAF [Suspect]
     Active Substance: TACROLIMUS
     Dosage: 10 MG, DAILY
     Route: 064
     Dates: start: 20181201, end: 20190207
  4. PROGRAF [Suspect]
     Active Substance: TACROLIMUS
     Indication: RENAL TRANSPLANT
     Dosage: 12 MG, DAILY
     Route: 064
     Dates: start: 20181113, end: 20181130
  5. TACROLIMUS. [Suspect]
     Active Substance: TACROLIMUS
     Indication: RENAL TRANSPLANT
     Route: 064
     Dates: start: 20170306, end: 20181112
  6. AZATHIOPRINE. [Concomitant]
     Active Substance: AZATHIOPRINE
     Indication: RENAL TRANSPLANT
     Dosage: 75?100 MG DAILY
     Route: 064
  7. PROGESTERONE. [Suspect]
     Active Substance: PROGESTERONE
     Indication: PRODUCT USED FOR UNKNOWN INDICATION
     Dosage: UNK UNK, UNKNOWN FREQ.
     Route: 064

REACTIONS (1)
  - Foetal growth restriction [Recovered/Resolved]
